FAERS Safety Report 8316226-0 (Version None)
Quarter: 2012Q2

REPORT INFORMATION
  Report Type: 
  Country: None (occurrence: None)
  Receive Date: 20120427
  Receipt Date: 20120424
  Transmission Date: 20120825
  Serious: Yes (Other)
  Sender: FDA-Public Use
  Company Number: US-PFIZER INC-2012073859

PATIENT

DRUGS (1)
  1. CHANTIX [Suspect]
     Dosage: UNK

REACTIONS (7)
  - NIGHT SWEATS [None]
  - NIGHTMARE [None]
  - PALPITATIONS [None]
  - SKIN EXFOLIATION [None]
  - MIDDLE INSOMNIA [None]
  - FEAR [None]
  - DRUG INEFFECTIVE [None]
